FAERS Safety Report 10760789 (Version 1)
Quarter: 2015Q1

REPORT INFORMATION
  Report Type: Spontaneous
  Country: IN (occurrence: None)
  Receive Date: 20150202
  Receipt Date: 20150202
  Transmission Date: 20150721
  Serious: Yes (Hospitalization)
  Sender: FDA-Public Use
  Company Number: IN-2015VAL000059

PATIENT
  Age: 75 Year
  Sex: Male

DRUGS (7)
  1. METFORMIN [Concomitant]
     Active Substance: METFORMIN HYDROCHLORIDE
  2. PREDNISOLONE (PREDNISOLONE) [Concomitant]
     Active Substance: PREDNISOLONE
  3. RANITIDINE [Concomitant]
     Active Substance: RANITIDINE\RANITIDINE HYDROCHLORIDE
  4. GLIBENCLAMIDE (GLIBENCLAMIDE) [Concomitant]
     Active Substance: GLYBURIDE
  5. ACARBOSE (ACARBOSE) [Concomitant]
  6. CARBAMAZEPINE (CARBAMAZEPINE) UNKNOWN [Suspect]
     Active Substance: CARBAMAZEPINE
     Indication: PRODUCT USED FOR UNKNOWN INDICATION
     Dosage: ONE TAQBLET
  7. AZATHIOPRINE (AZATHIOPRINE) [Concomitant]
     Active Substance: AZATHIOPRINE

REACTIONS (2)
  - Drug eruption [None]
  - Pemphigoid [None]
